FAERS Safety Report 16070864 (Version 3)
Quarter: 2019Q2

REPORT INFORMATION
  Report Type: Spontaneous
  Country: IT (occurrence: IT)
  Receive Date: 20190314
  Receipt Date: 20190524
  Transmission Date: 20190711
  Serious: Yes (Life-Threatening, Hospitalization, Other)
  Sender: FDA-Public Use
  Company Number: IT-AUROBINDO-AUR-APL-2019-012641

PATIENT

DRUGS (11)
  1. METHYLPREDNISOLONE. [Suspect]
     Active Substance: METHYLPREDNISOLONE
     Indication: IMMUNOSUPPRESSION
     Dosage: 500 MILLIGRAM, ONCE A DAY
     Route: 042
     Dates: start: 201609
  2. VALGANCICLOVIR. [Concomitant]
     Active Substance: VALGANCICLOVIR
     Indication: ANTIVIRAL PROPHYLAXIS
     Dosage: 450 MILLIGRAM, 3 DAY
     Route: 065
     Dates: start: 201609
  3. PENTAMIDINE [Concomitant]
     Active Substance: PENTAMIDINE
     Indication: ANTIFUNGAL PROPHYLAXIS
     Dosage: UNK, QM; 1 VIAL PER AEROSOL
     Route: 065
     Dates: start: 201609
  4. OLMESARTAN [Suspect]
     Active Substance: OLMESARTAN
     Indication: PRODUCT USED FOR UNKNOWN INDICATION
     Dosage: 40 MILLIGRAM, ONCE A DAY
     Route: 065
  5. TACROLIMUS. [Suspect]
     Active Substance: TACROLIMUS
     Indication: IMMUNOSUPPRESSION
     Dosage: UNK
     Route: 065
  6. THYMOGLOBULINE [Suspect]
     Active Substance: LAPINE T-LYMPHOCYTE IMMUNE GLOBULIN
     Indication: IMMUNOSUPPRESSION
     Dosage: UNK, INDUCTION THERAPY
     Route: 065
     Dates: start: 201609
  7. AMLODIPINE [Suspect]
     Active Substance: AMLODIPINE BESYLATE
     Indication: PRODUCT USED FOR UNKNOWN INDICATION
     Dosage: 10 MILLIGRAM, ONCE A DAY
     Route: 065
  8. MYCOPHENOLATE [Suspect]
     Active Substance: MYCOPHENOLIC ACID
     Indication: IMMUNOSUPPRESSION
     Dosage: 720 MILLIGRAM, TWO TIMES A DAY
     Route: 065
     Dates: start: 201609
  9. EVEROLIMUS. [Suspect]
     Active Substance: EVEROLIMUS
     Indication: IMMUNOSUPPRESSION
     Dosage: 1.25 MILLIGRAM, TWO TIMES A DAY
     Route: 065
     Dates: start: 201609
  10. PREDNISONE. [Suspect]
     Active Substance: PREDNISONE
     Indication: IMMUNOSUPPRESSION
     Dosage: 20 MILLIGRAM, ONCE A DAY
     Route: 065
     Dates: start: 201609
  11. PREDNISONE. [Suspect]
     Active Substance: PREDNISONE
     Dosage: 10 MILLIGRAM, TWO TIMES A DAY
     Route: 065

REACTIONS (22)
  - Delayed graft function [Recovering/Resolving]
  - Acute respiratory failure [Recovering/Resolving]
  - Asthenia [Recovered/Resolved]
  - Renal impairment [Recovered/Resolved]
  - Drug level decreased [Recovering/Resolving]
  - Leukopenia [Unknown]
  - Urinary tract infection [Unknown]
  - Hypercalcaemia [Recovered/Resolved]
  - Renal tubular necrosis [Recovering/Resolving]
  - Cytomegalovirus gastroenteritis [Recovered/Resolved]
  - Decreased appetite [Recovered/Resolved]
  - Urinary tract infection bacterial [Unknown]
  - Cough [Unknown]
  - Hyperuricaemia [Unknown]
  - Pneumocystis jirovecii pneumonia [Recovered/Resolved]
  - Hypotension [Unknown]
  - Oral herpes [Recovered/Resolved]
  - Escherichia infection [Unknown]
  - Acute kidney injury [Recovered/Resolved]
  - Dehydration [Recovered/Resolved]
  - Nausea [Recovered/Resolved]
  - Sepsis [Recovered/Resolved]

NARRATIVE: CASE EVENT DATE: 2016
